FAERS Safety Report 5036342-9 (Version None)
Quarter: 2006Q2

REPORT INFORMATION
  Report Type: 
  Country: None (occurrence: None)
  Receive Date: 20060601
  Receipt Date: 20051215
  Transmission Date: 20061013
  Serious: Yes (Hospitalization)
  Sender: FDA-Public Use
  Company Number: 428956

PATIENT
  Age: 20 Year
  Sex: Female

DRUGS (2)
  1. LARIAM [Suspect]
     Dosage: ORAL
     Route: 048
     Dates: start: 20050815, end: 20050815
  2. BIRTH CONTROL PILLS NOS (ORAL CONTRACEPTIVE NOS) [Concomitant]

REACTIONS (1)
  - PSYCHOTIC DISORDER [None]
